FAERS Safety Report 13568233 (Version 2)
Quarter: 2017Q2

REPORT INFORMATION
  Report Type: Spontaneous
  Country: US (occurrence: US)
  Receive Date: 20170522
  Receipt Date: 20170525
  Transmission Date: 20170830
  Serious: Yes (Other)
  Sender: FDA-Public Use
  Company Number: US-GLAXOSMITHKLINE-US2017074566

PATIENT
  Age: 4 Year
  Sex: Male

DRUGS (3)
  1. POTIGA [Suspect]
     Active Substance: EZOGABINE
     Dosage: 50 MG, BID
     Route: 048
  2. POTIGA [Suspect]
     Active Substance: EZOGABINE
     Indication: EPILEPSY
     Dosage: 50 MG, TID
     Route: 048
     Dates: start: 201210
  3. ONFI [Concomitant]
     Active Substance: CLOBAZAM

REACTIONS (4)
  - Drug ineffective [Unknown]
  - Drug administered to patient of inappropriate age [Unknown]
  - Seizure [Not Recovered/Not Resolved]
  - Therapeutic response decreased [Unknown]

NARRATIVE: CASE EVENT DATE: 201612
